FAERS Safety Report 8577948 (Version 5)
Quarter: 2013Q3

REPORT INFORMATION
  Report Type: Report from Study
  Country: DE (occurrence: DE)
  Receive Date: 20120524
  Receipt Date: 20130705
  Transmission Date: 20140515
  Serious: Yes (Hospitalization, Other)
  Sender: FDA-Public Use
  Company Number: DE-PFIZER INC-2012117564

PATIENT
  Age: 74 Year
  Sex: Male

DRUGS (7)
  1. SUTENT [Suspect]
     Indication: METASTATIC RENAL CELL CARCINOMA
     Dosage: 50 MG, 1X/DAY
     Route: 048
     Dates: start: 20120304
  2. NEXAVAR [Suspect]
     Indication: RENAL CELL CARCINOMA
     Dosage: 400 MG, 2X/DAY
     Route: 048
     Dates: start: 20110916, end: 20120302
  3. CARMEN [Concomitant]
     Dosage: 20 MG, 1X/DAY
     Dates: start: 20120507
  4. ENAHEXAL [Concomitant]
     Dosage: 40 MG, 1X/DAY
     Dates: start: 20120507
  5. BISOHEXAL [Concomitant]
     Dosage: 10 MG, 1X/DAY
     Dates: start: 20120507
  6. MOXONIDINE [Concomitant]
     Dosage: 0.6 MG, 1X/DAY
     Dates: start: 20120507
  7. SIMVA [Concomitant]
     Dosage: 20 MG, 1X/DAY
     Dates: start: 20120507

REACTIONS (1)
  - Hyponatraemia [Recovered/Resolved]
